FAERS Safety Report 9802130 (Version 2)
Quarter: 2014Q3

REPORT INFORMATION
  Report Type: Spontaneous
  Country: US (occurrence: US)
  Receive Date: 20140107
  Receipt Date: 20140806
  Transmission Date: 20150326
  Serious: Yes (Other)
  Sender: FDA-Public Use
  Company Number: US-009507513-1401USA002014

PATIENT
  Sex: Female
  Weight: 91.16 kg

DRUGS (1)
  1. NUVARING [Suspect]
     Active Substance: ETHINYL ESTRADIOL\ETONOGESTREL
     Route: 067

REACTIONS (3)
  - Cerebrovascular accident [Unknown]
  - Cerebral artery occlusion [Unknown]
  - Vertigo positional [Unknown]

NARRATIVE: CASE EVENT DATE: 201005
